FAERS Safety Report 8829916 (Version 1)
Quarter: 2012Q4

REPORT INFORMATION
  Report Type: 
  Country: KP (occurrence: KP)
  Receive Date: 20121008
  Receipt Date: 20121008
  Transmission Date: 20130627
  Serious: Yes (Life-Threatening, Other)
  Sender: FDA-Public Use
  Company Number: KP-ROXANE LABORATORIES, INC.-2012-RO-01975RO

PATIENT
  Age: 46 Year
  Sex: Female

DRUGS (4)
  1. CYCLOPHOSPHAMIDE TABLETS USP [Suspect]
     Indication: LUPUS NEPHRITIS
  2. PREDNISOLONE [Suspect]
     Indication: LUPUS NEPHRITIS
     Route: 048
  3. PREDNISOLONE [Suspect]
     Route: 048
  4. PREDNISOLONE [Suspect]
     Dosage: 5 mg
     Route: 048

REACTIONS (3)
  - Carotid artery aneurysm [Recovered/Resolved]
  - Cerebral aspergillosis [Recovered/Resolved]
  - Sinusitis [Recovered/Resolved]
